FAERS Safety Report 19213573 (Version 1)
Quarter: 2021Q2

REPORT INFORMATION
  Report Type: Spontaneous
  Country: US (occurrence: US)
  Receive Date: 20210504
  Receipt Date: 20210504
  Transmission Date: 20210717
  Serious: No
  Sender: FDA-Public Use
  Company Number: US-SA-2021SA137631

PATIENT
  Sex: Female

DRUGS (3)
  1. CLARITINE [Concomitant]
     Active Substance: LORATADINE
     Dosage: 1 DF
  2. XYZAL ALLERGY 24HR [Suspect]
     Active Substance: LEVOCETIRIZINE DIHYDROCHLORIDE
     Indication: SEASONAL ALLERGY
     Dosage: UNK
  3. CLARITINE [Concomitant]
     Active Substance: LORATADINE
     Dosage: 0.5 DF

REACTIONS (2)
  - Wrong technique in product usage process [Unknown]
  - Somnolence [Unknown]
